FAERS Safety Report 6144083-X (Version None)
Quarter: 2009Q2

REPORT INFORMATION
  Report Type: 
  Country: None (occurrence: None)
  Receive Date: 20090406
  Receipt Date: 20090327
  Transmission Date: 20091009
  Serious: Yes (Hospitalization)
  Sender: FDA-Public Use
  Company Number: US-BIOGENIDEC-2009BI004499

PATIENT
  Age: 54 Year
  Sex: Male
  Weight: 113 kg

DRUGS (2)
  1. TYSABRI [Suspect]
     Indication: MULTIPLE SCLEROSIS
     Dates: start: 20081203
  2. LOVASTATIN [Concomitant]
     Indication: BLOOD CHOLESTEROL INCREASED

REACTIONS (14)
  - ASTHENIA [None]
  - CATHETER RELATED INFECTION [None]
  - CHEST PAIN [None]
  - FALL [None]
  - FATIGUE [None]
  - FEELING HOT [None]
  - HOT FLUSH [None]
  - HYPERHIDROSIS [None]
  - LIVER FUNCTION TEST ABNORMAL [None]
  - MUSCULOSKELETAL STIFFNESS [None]
  - PROGRESSIVE MULTIPLE SCLEROSIS [None]
  - PRURITUS [None]
  - TREMOR [None]
  - URINARY TRACT INFECTION [None]
